FAERS Safety Report 18283344 (Version 1)
Quarter: 2020Q3

REPORT INFORMATION
  Report Type: Spontaneous
  Country: DE (occurrence: DE)
  Receive Date: 20200918
  Receipt Date: 20200918
  Transmission Date: 20201103
  Serious: Yes (Hospitalization, Other)
  Sender: FDA-Public Use
  Company Number: DE-BRISTOL-MYERS SQUIBB COMPANY-BMS-2020-073908

PATIENT
  Age: 68 Year
  Sex: Male

DRUGS (2)
  1. NIVOLUMAB [Suspect]
     Active Substance: NIVOLUMAB
     Indication: PRODUCT USED FOR UNKNOWN INDICATION
     Dosage: 21?JUL?2020
     Route: 065
  2. FENTANYL. [Concomitant]
     Active Substance: FENTANYL
     Indication: PRODUCT USED FOR UNKNOWN INDICATION
     Dosage: 100 ?G, 04?AUG?2020
     Route: 065

REACTIONS (8)
  - General physical health deterioration [Recovering/Resolving]
  - Pallor [Recovering/Resolving]
  - Haemoglobin decreased [Recovering/Resolving]
  - Pancytopenia [Recovering/Resolving]
  - Inflammation [Recovering/Resolving]
  - Transaminases increased [Recovering/Resolving]
  - Autoimmune thyroiditis [Recovering/Resolving]
  - Anaemia [Recovering/Resolving]
